FAERS Safety Report 22241855 (Version 2)
Quarter: 2024Q4

REPORT INFORMATION
  Report Type: Report from Study
  Country: GB (occurrence: GB)
  Receive Date: 20230421
  Receipt Date: 20241113
  Transmission Date: 20250115
  Serious: Yes (Death, Hospitalization)
  Sender: NOVARTIS
  Company Number: GB-002147023-NVSC2023GB066686

PATIENT
  Age: 56 Year
  Sex: Male

DRUGS (1)
  1. PLUVICTO [Suspect]
     Active Substance: LUTETIUM LU-177 VIPIVOTIDE TETRAXETAN
     Indication: Hormone-refractory prostate cancer
     Dosage: UNK
     Route: 065
     Dates: start: 20221222

REACTIONS (10)
  - Sepsis [Fatal]
  - Anaemia [Fatal]
  - General physical health deterioration [Unknown]
  - Hypophagia [Unknown]
  - Confusional state [Unknown]
  - Pain [Unknown]
  - Mobility decreased [Unknown]
  - Pneumonia [Unknown]
  - COVID-19 [Unknown]
  - Ill-defined disorder [Unknown]

NARRATIVE: CASE EVENT DATE: 20230117
